FAERS Safety Report 8362063 (Version 2)
Quarter: 2016Q1

REPORT INFORMATION
  Report Type: Report from Study
  Country: US (occurrence: US)
  Receive Date: 20120130
  Receipt Date: 20160217
  Transmission Date: 20160526
  Serious: Yes (Death)
  Sender: FDA-Public Use
  Company Number: US-ROCHE-1033656

PATIENT
  Age: 28 Year
  Sex: Male

DRUGS (1)
  1. AVASTIN [Suspect]
     Active Substance: BEVACIZUMAB
     Indication: MALIGNANT MELANOMA OF EYELID
     Dosage: 400 MG EVERY OTHER WEEK
     Route: 042
     Dates: start: 20090422

REACTIONS (1)
  - Death [Fatal]

NARRATIVE: CASE EVENT DATE: 20090713
